FAERS Safety Report 5007872-0 (Version None)
Quarter: 2006Q2

REPORT INFORMATION
  Report Type: 
  Country: None (occurrence: None)
  Receive Date: 20060522
  Receipt Date: 20060515
  Transmission Date: 20061013
  Serious: Yes (Life-Threatening, Hospitalization)
  Sender: FDA-Public Use
  Company Number: PHEH2006US06447

PATIENT
  Age: 49 Year
  Sex: Male

DRUGS (1)
  1. CLOZARIL [Suspect]
     Dosage: 300 MG, QD
     Route: 048

REACTIONS (7)
  - AGRANULOCYTOSIS [None]
  - DEPRESSION [None]
  - LEUKOPENIA [None]
  - METASTASES TO BONE [None]
  - PAIN [None]
  - SMALL CELL LUNG CANCER METASTATIC [None]
  - TERMINAL STATE [None]
